FAERS Safety Report 9944750 (Version 1)
Quarter: 2014Q1

REPORT INFORMATION
  Report Type: Spontaneous
  Country: US (occurrence: US)
  Receive Date: 20140303
  Receipt Date: 20140303
  Transmission Date: 20141002
  Serious: No
  Sender: FDA-Public Use
  Company Number: US-ABBVIE-13P-163-1053406-00

PATIENT
  Age: 39 Year
  Sex: Female
  Weight: 51.3 kg

DRUGS (6)
  1. HUMIRA [Suspect]
     Indication: ARTHRITIS
     Route: 058
     Dates: start: 201208, end: 20130206
  2. ORTHO TRI CYCLEN [Concomitant]
     Indication: CONTRACEPTION
  3. VITAMIN D [Concomitant]
     Indication: PRODUCT USED FOR UNKNOWN INDICATION
  4. MULTIVITAMINS [Concomitant]
     Indication: PRODUCT USED FOR UNKNOWN INDICATION
  5. PREDNISONE [Concomitant]
     Indication: PAIN
  6. EXCEDRIN [Concomitant]
     Indication: MIGRAINE

REACTIONS (2)
  - Off label use [Not Recovered/Not Resolved]
  - Drug effect decreased [Not Recovered/Not Resolved]
